FAERS Safety Report 4697306-8 (Version None)
Quarter: 2005Q2

REPORT INFORMATION
  Report Type: 
  Country: None (occurrence: None)
  Receive Date: 20050622
  Receipt Date: 20050614
  Transmission Date: 20051028
  Serious: Yes (Hospitalization)
  Sender: FDA-Public Use
  Company Number: 200512012FR

PATIENT
  Age: 57 Year
  Sex: Female

DRUGS (8)
  1. ARAVA [Suspect]
     Indication: RHEUMATOID ARTHRITIS
     Route: 048
     Dates: start: 20050501
  2. GYNERGENE CAFEINE [Concomitant]
     Indication: MIGRAINE
     Route: 048
  3. CALDINE [Concomitant]
     Indication: HYPERTENSION
     Route: 048
  4. VOLTAREN [Concomitant]
     Indication: RHEUMATOID ARTHRITIS
  5. TANAKAN [Concomitant]
     Route: 048
  6. EUPANTHOL [Concomitant]
  7. ABUFENE [Concomitant]
     Indication: HOT FLUSH
     Route: 048
  8. VENIRENE [Concomitant]
     Indication: VENOUS INSUFFICIENCY
     Route: 048

REACTIONS (3)
  - PAPILLOEDEMA [None]
  - VISION BLURRED [None]
  - VISUAL FIELD DEFECT [None]
